FAERS Safety Report 5210737-2 (Version None)
Quarter: 2007Q1

REPORT INFORMATION
  Report Type: 
  Country: None (occurrence: None)
  Receive Date: 20070117
  Receipt Date: 20070104
  Transmission Date: 20070707
  Serious: Yes (Hospitalization)
  Sender: FDA-Public Use
  Company Number: JP-SANOFI-SYNTHELABO-A01200700297

PATIENT
  Age: 61 Year
  Sex: Male
  Weight: 42 kg

DRUGS (8)
  1. HEPARIN SODIUM INJECTION [Concomitant]
     Route: 042
     Dates: start: 20060304, end: 20060304
  2. GLUCOSE [Concomitant]
     Dates: start: 20060302, end: 20060303
  3. SOLITA-T NO. 3 [Concomitant]
     Dates: start: 20060302, end: 20060303
  4. DEXAMETHASONE SODIUM PHOSPHATE [Concomitant]
     Dates: start: 20060302, end: 20060419
  5. GRANISETRON  HCL [Concomitant]
     Dates: start: 20060302, end: 20060419
  6. FLUOROURACIL [Suspect]
     Dosage: 500 MG/BODY=400 MG/M2 IN BOLUS THEN 750 MG/BODY=600 MG/M2 AS INFUSION, DAYS 1+2
     Route: 042
     Dates: start: 20060419, end: 20060420
  7. LEUCOVORIN CALCIUM [Suspect]
     Dosage: 125 MG/BODY=100 MG/M2,INFUSION ON DAYS 1+2
     Route: 042
     Dates: start: 20060419, end: 20060420
  8. OXALIPLATIN [Suspect]
     Indication: LARGE INTESTINE CARCINOMA
     Route: 042
     Dates: start: 20060419, end: 20060419

REACTIONS (1)
  - ELECTROCARDIOGRAM QT PROLONGED [None]
